FAERS Safety Report 7219774-X (Version None)
Quarter: 2011Q1

REPORT INFORMATION
  Report Type: 
  Country: None (occurrence: None)
  Receive Date: 20110111
  Receipt Date: 20101222
  Transmission Date: 20110831
  Serious: No
  Sender: FDA-Public Use
  Company Number: US-B.I. PHARMACEUTICALS,INC./RIDGEFIELD-2010-BP-15392BP

PATIENT
  Sex: Male

DRUGS (5)
  1. PRADAXA [Suspect]
     Indication: ATRIAL FIBRILLATION
     Dosage: 300 MG
     Route: 048
     Dates: start: 20101219
  2. LOSARTAN POTASSIUM [Concomitant]
     Indication: HYPERTENSION
  3. AMIODARONE [Concomitant]
     Indication: ATRIAL FIBRILLATION
  4. VYTORIN [Concomitant]
     Indication: BLOOD CHOLESTEROL INCREASED
  5. DILTIAZEM [Concomitant]
     Indication: HYPERTENSION

REACTIONS (3)
  - NAUSEA [None]
  - VOMITING [None]
  - FATIGUE [None]
